FAERS Safety Report 6417396-1 (Version None)
Quarter: 2009Q4

REPORT INFORMATION
  Report Type: 
  Country: None (occurrence: None)
  Receive Date: 20091027
  Receipt Date: 20091027
  Transmission Date: 20100525
  Serious: Yes (Life-Threatening)
  Sender: FDA-Public Use
  Company Number: None

PATIENT
  Age: 45 Year
  Sex: Female
  Weight: 48 kg

DRUGS (10)
  1. LEFLUNOMIDE [Suspect]
     Indication: IMMUNOSUPPRESSION
     Dosage: 20MG QD PO
     Route: 048
     Dates: start: 20070422, end: 20090523
  2. CALCIUM CARBONATE [Concomitant]
  3. PREMARIN [Concomitant]
  4. GLARGINE [Concomitant]
  5. MULTI-VITAMIN [Concomitant]
  6. OXYCODONE [Concomitant]
  7. PANCREASE MT [Concomitant]
  8. PROTONIX [Concomitant]
  9. PREDNISONE [Concomitant]
  10. TACROLIMUS [Concomitant]

REACTIONS (2)
  - LIVER FUNCTION TEST ABNORMAL [None]
  - LIVER INJURY [None]
